FAERS Safety Report 7420801-5 (Version None)
Quarter: 2011Q2

REPORT INFORMATION
  Report Type: 
  Country: None (occurrence: None)
  Receive Date: 20110418
  Receipt Date: 20110330
  Transmission Date: 20111010
  Serious: No
  Sender: FDA-Public Use
  Company Number: US-B.I. PHARMACEUTICALS,INC./RIDGEFIELD-2011-BP-02562BP

PATIENT
  Sex: Female

DRUGS (9)
  1. METOPROLOL [Concomitant]
  2. CRESTOR [Concomitant]
  3. DILTIAZEM HC/ER [Concomitant]
  4. FLECAINIDE ACETATE [Concomitant]
  5. PRADAXA [Suspect]
     Indication: ATRIAL FIBRILLATION
     Dosage: 150 MG
     Route: 048
     Dates: start: 20110121
  6. FISH OIL [Concomitant]
  7. JANUVIA [Concomitant]
  8. PRISTIQ [Concomitant]
  9. VITAMIN D [Concomitant]

REACTIONS (2)
  - DIZZINESS [None]
  - HEART RATE INCREASED [None]
